FAERS Safety Report 17292808 (Version 1)
Quarter: 2020Q1

REPORT INFORMATION
  Report Type: Spontaneous
  Country: US (occurrence: US)
  Receive Date: 20200102
  Receipt Date: 20200102
  Transmission Date: 20200409
  Serious: Yes (Death)
  Sender: FDA-Public Use
  Company Number: None

PATIENT
  Sex: Male

DRUGS (3)
  1. ORENCIA [Suspect]
     Active Substance: ABATACEPT
     Indication: RHEUMATOID ARTHRITIS
     Route: 058
     Dates: start: 20140623, end: 20191212
  2. VITAMIN D [Concomitant]
     Active Substance: VITAMIN D NOS
  3. CENTRUM [Concomitant]
     Active Substance: VITAMINS

REACTIONS (1)
  - Death [None]
